FAERS Safety Report 13006891 (Version 1)
Quarter: 2016Q4

REPORT INFORMATION
  Report Type: Spontaneous
  Country: GB (occurrence: GB)
  Receive Date: 20161207
  Receipt Date: 20161207
  Transmission Date: 20170207
  Serious: Yes (Other)
  Sender: FDA-Public Use
  Company Number: GB-TEVA-716328ACC

PATIENT
  Age: 35 Year
  Sex: Female
  Weight: 65.77 kg

DRUGS (1)
  1. VENLAFAXINE [Suspect]
     Active Substance: VENLAFAXINE HYDROCHLORIDE
     Indication: DEPRESSION
     Dosage: 37.5MG BUT TOOK HALF.
     Route: 048
     Dates: start: 20151110, end: 20161113

REACTIONS (3)
  - Muscle twitching [Not Recovered/Not Resolved]
  - Dystonia [Not Recovered/Not Resolved]
  - Facial spasm [Not Recovered/Not Resolved]

NARRATIVE: CASE EVENT DATE: 20161111
